FAERS Safety Report 23271851 (Version 2)
Quarter: 2025Q2

REPORT INFORMATION
  Report Type: Spontaneous
  Country: VE (occurrence: VE)
  Receive Date: 20231207
  Receipt Date: 20250408
  Transmission Date: 20250717
  Serious: Yes (Death, Hospitalization, Other)
  Sender: PFIZER
  Company Number: VE-PFIZER INC-PV202300197438

PATIENT
  Age: 70 Year
  Sex: Female

DRUGS (1)
  1. BOSULIF [Suspect]
     Active Substance: BOSUTINIB MONOHYDRATE
     Indication: Chronic myeloid leukaemia

REACTIONS (5)
  - Second primary malignancy [Fatal]
  - Lung neoplasm [Fatal]
  - Pleural effusion [Fatal]
  - Illness [Unknown]
  - Asthenia [Unknown]

NARRATIVE: CASE EVENT DATE: 20250123
